FAERS Safety Report 9685595 (Version 2)
Quarter: 2013Q4

REPORT INFORMATION
  Report Type: Spontaneous
  Country: US (occurrence: US)
  Receive Date: 20131113
  Receipt Date: 20131226
  Transmission Date: 20140711
  Serious: No
  Sender: FDA-Public Use
  Company Number: US-BAYER-2013-138008

PATIENT
  Age: 46 Year
  Sex: Female
  Weight: 75.74 kg

DRUGS (1)
  1. MIRENA [Suspect]
     Indication: MENORRHAGIA
     Dosage: 20 MCG/24HR, CONT
     Route: 015
     Dates: start: 20131028, end: 20131103

REACTIONS (4)
  - Pain [Recovered/Resolved]
  - Device expulsion [Recovered/Resolved]
  - Hypomenorrhoea [None]
  - Drug ineffective [None]
